FAERS Safety Report 9499925 (Version 1)
Quarter: 2013Q3

REPORT INFORMATION
  Report Type: Spontaneous
  Country: US (occurrence: None)
  Receive Date: 20130904
  Receipt Date: 20130904
  Transmission Date: 20140515
  Serious: Yes (Life-Threatening, Hospitalization)
  Sender: FDA-Public Use
  Company Number: None

PATIENT
  Age: 80 Year
  Sex: Male
  Weight: 76.2 kg

DRUGS (4)
  1. WARFARIN [Suspect]
     Indication: DEEP VEIN THROMBOSIS
     Route: 048
     Dates: start: 20130703, end: 20130717
  2. WARFARIN [Suspect]
     Indication: PULMONARY EMBOLISM
     Route: 048
     Dates: start: 20130703, end: 20130717
  3. ENOXAPARIN [Suspect]
     Indication: DEEP VEIN THROMBOSIS
     Route: 058
     Dates: start: 20130705, end: 20130717
  4. ENOXAPARIN [Suspect]
     Indication: PULMONARY HAEMORRHAGE
     Route: 058
     Dates: start: 20130705, end: 20130717

REACTIONS (2)
  - Haemorrhage [None]
  - Anaemia [None]
